FAERS Safety Report 8532249-0 (Version None)
Quarter: 2012Q3

REPORT INFORMATION
  Report Type: 
  Country: None (occurrence: None)
  Receive Date: 20120724
  Receipt Date: 20120712
  Transmission Date: 20120928
  Serious: Yes (Other)
  Sender: FDA-Public Use
  Company Number: ES-BRISTOL-MYERS SQUIBB COMPANY-16765398

PATIENT
  Sex: Female

DRUGS (1)
  1. ABATACEPT [Suspect]
     Dates: start: 20120628

REACTIONS (1)
  - ARTHROPATHY [None]
